FAERS Safety Report 6737464-4 (Version None)
Quarter: 2010Q2

REPORT INFORMATION
  Report Type: 
  Country: None (occurrence: None)
  Receive Date: 20100524
  Receipt Date: 20100511
  Transmission Date: 20101027
  Serious: Yes (Other)
  Sender: FDA-Public Use
  Company Number: US-BAYER-201015091NA

PATIENT
  Age: 18 Year
  Sex: Female

DRUGS (13)
  1. YAZ [Suspect]
     Indication: CONTRACEPTION
     Route: 048
     Dates: start: 20050101, end: 20080101
  2. ADVIL LIQUI-GELS [Concomitant]
     Dates: start: 20030101
  3. IMITREX [Concomitant]
     Dates: start: 20050101, end: 20050101
  4. ANTIBIOTICS [Concomitant]
     Indication: URINARY TRACT INFECTION
     Dates: start: 20080201
  5. LEXAPRO [Concomitant]
     Indication: OBSESSIVE-COMPULSIVE DISORDER
     Dates: start: 20060101, end: 20060101
  6. BUSPAR [Concomitant]
     Indication: OBSESSIVE-COMPULSIVE DISORDER
     Dates: start: 20070101, end: 20070101
  7. KLONOPIN [Concomitant]
     Indication: OBSESSIVE-COMPULSIVE DISORDER
     Dosage: UNIT DOSE: 0.5 MG
     Dates: start: 20090601, end: 20091201
  8. WELLBUTRIN [Concomitant]
     Indication: OBSESSIVE-COMPULSIVE DISORDER
     Dates: start: 20091201
  9. SERTRALINE HCL [Concomitant]
  10. PROPOXYPHENE NAPSYLATE AND ACETAMINOPHEN [Concomitant]
  11. PHENAZOPYRIDINE HCL TAB [Concomitant]
  12. SULFAMETHOXAZOLE [Concomitant]
  13. ZOLOFT [Concomitant]
     Dosage: ZOLOFT 25 MG EVERY DAY

REACTIONS (7)
  - ABDOMINAL DISCOMFORT [None]
  - ABDOMINAL PAIN UPPER [None]
  - BACK PAIN [None]
  - BILIARY DYSKINESIA [None]
  - GALLBLADDER INJURY [None]
  - NAUSEA [None]
  - VOMITING [None]
